FAERS Safety Report 6970921-4 (Version None)
Quarter: 2010Q3

REPORT INFORMATION
  Report Type: 
  Country: None (occurrence: None)
  Receive Date: 20100908
  Receipt Date: 20100827
  Transmission Date: 20110219
  Serious: Yes (Hospitalization)
  Sender: FDA-Public Use
  Company Number: US-PFIZER INC-2005170863

PATIENT
  Sex: Male
  Weight: 62.8 kg

DRUGS (12)
  1. SUNITINIB MALATE [Suspect]
     Indication: METASTATIC RENAL CELL CARCINOMA
     Dosage: 50 MG, 1X/DAY
     Route: 048
     Dates: start: 20051107, end: 20051120
  2. SUNITINIB MALATE [Suspect]
     Dosage: 37.5 MG, 1X/DAY
     Route: 048
     Dates: start: 20051121, end: 20051201
  3. PREVACID [Concomitant]
     Dosage: UNK
     Route: 048
     Dates: start: 20050501
  4. IRON [Concomitant]
     Dosage: UNK
     Route: 048
     Dates: start: 20050901
  5. LORTAB [Concomitant]
     Dosage: UNK
     Route: 048
     Dates: start: 20051001
  6. NYSTATIN [Concomitant]
     Dosage: UNK
     Route: 048
     Dates: start: 20050101
  7. MARINOL [Concomitant]
     Dosage: UNK
     Route: 048
     Dates: start: 20051121
  8. OXYCODONE HCL [Concomitant]
     Dosage: UNK
     Route: 048
     Dates: start: 20051117
  9. COMPAZINE [Concomitant]
     Dosage: UNK
     Route: 048
     Dates: start: 20051107
  10. OXYCONTIN [Concomitant]
     Dosage: UNK
     Route: 048
     Dates: start: 20051117
  11. COLACE [Concomitant]
     Dosage: UNK
     Route: 048
     Dates: start: 20051124
  12. SENNA [Concomitant]
     Dosage: UNK
     Route: 048
     Dates: start: 20051124

REACTIONS (2)
  - HAEMOPTYSIS [None]
  - THROMBOCYTOPENIA [None]
